FAERS Safety Report 5366484-X (Version None)
Quarter: 2007Q2

REPORT INFORMATION
  Report Type: 
  Country: None (occurrence: None)
  Receive Date: 20070622
  Receipt Date: 20070618
  Transmission Date: 20071010
  Serious: Yes (Congenital Anomaly, Other)
  Sender: FDA-Public Use
  Company Number: PHNU2007DE02148

PATIENT
  Sex: Male

DRUGS (2)
  1. CLOZAPINE [Suspect]
     Dosage: MATERNAL DOSE: 100 MG/DAY
     Route: 064
  2. CLOZAPINE [Suspect]
     Dosage: MATERNAL DOSE: 100 MG/DAY

REACTIONS (6)
  - CRYPTORCHISM [None]
  - DRUG EXPOSURE DURING PREGNANCY [None]
  - DRUG EXPOSURE VIA BREAST MILK [None]
  - HEART RATE IRREGULAR [None]
  - PREMATURE BABY [None]
  - SKIN PAPILLOMA [None]
